FAERS Safety Report 14542276 (Version 1)
Quarter: 2018Q1

REPORT INFORMATION
  Report Type: Spontaneous
  Country: AU (occurrence: AU)
  Receive Date: 20180216
  Receipt Date: 20180216
  Transmission Date: 20180509
  Serious: Yes (Other)
  Sender: FDA-Public Use
  Company Number: AU-OTSUKA-DJ201301287

PATIENT
  Sex: Female

DRUGS (3)
  1. SODIUM VALPROATE [Suspect]
     Active Substance: VALPROATE SODIUM
     Indication: BIPOLAR II DISORDER
     Dosage: UNK
     Route: 065
  2. ZYPREXA [Suspect]
     Active Substance: OLANZAPINE
     Indication: PRODUCT USED FOR UNKNOWN INDICATION
     Dosage: UNK
     Route: 065
  3. ABILIFY [Suspect]
     Active Substance: ARIPIPRAZOLE
     Indication: BIPOLAR II DISORDER
     Dosage: UNK
     Route: 048

REACTIONS (9)
  - Nausea [Unknown]
  - Palpitations [Unknown]
  - Peripheral coldness [Unknown]
  - Heart rate decreased [Unknown]
  - Paralysis [Unknown]
  - Alopecia [Unknown]
  - Vision blurred [Unknown]
  - Tinnitus [Unknown]
  - Tooth loss [Unknown]
